FAERS Safety Report 16041791 (Version 1)
Quarter: 2019Q1

REPORT INFORMATION
  Report Type: Spontaneous
  Country: US (occurrence: US)
  Receive Date: 20190306
  Receipt Date: 20190306
  Transmission Date: 20190418
  Serious: No
  Sender: FDA-Public Use
  Company Number: US-PFIZER INC-2019013172

PATIENT
  Age: 71 Year
  Sex: Female
  Weight: 86.18 kg

DRUGS (2)
  1. IBRANCE [Suspect]
     Active Substance: PALBOCICLIB
     Indication: BREAST CANCER METASTATIC
     Dosage: 100 MG, CYCLIC (FOR 21 DAYS)
     Route: 048
  2. COENZYME Q10 [Suspect]
     Active Substance: UBIDECARENONE
     Indication: REHABILITATION THERAPY
     Dosage: 1 DF, 1X/DAY (ONCE A DAY GEL CAPSULE)
     Dates: end: 201809

REACTIONS (1)
  - White blood cell count decreased [Unknown]
